FAERS Safety Report 4711217-0 (Version None)
Quarter: 2005Q3

REPORT INFORMATION
  Report Type: 
  Country: None (occurrence: None)
  Receive Date: 20050708
  Receipt Date: 20050623
  Transmission Date: 20060218
  Serious: Yes (Death, Hospitalization, Other)
  Sender: FDA-Public Use
  Company Number: 2005FR-00059

PATIENT
  Age: 40 Year
  Sex: Female
  Weight: 58 kg

DRUGS (4)
  1. PARACETAMOL (ACETAMINOPHEN) AND CODEINE [Suspect]
     Indication: HEADACHE
     Dosage: 30/500, 2 TAB QID
  2. ENALAPRIL MALEATE [Concomitant]
  3. ASPIRIN [Concomitant]
  4. ATENOLOL [Concomitant]

REACTIONS (2)
  - PHAEOCHROMOCYTOMA [None]
  - URINE ANALYSIS ABNORMAL [None]
